FAERS Safety Report 19789079 (Version 1)
Quarter: 2021Q3

REPORT INFORMATION
  Report Type: Spontaneous
  Country: CA (occurrence: CA)
  Receive Date: 20210904
  Receipt Date: 20210904
  Transmission Date: 20211014
  Serious: Yes (Life-Threatening, Other)
  Sender: FDA-Public Use
  Company Number: CA-ACCORD-237496

PATIENT
  Age: 57 Year
  Sex: Female
  Weight: 36 kg

DRUGS (5)
  1. OXALIPLATIN. [Suspect]
     Active Substance: OXALIPLATIN
     Indication: COLON CANCER
     Dosage: 1 EVERY 14 DAYS
     Route: 041
  2. ZOPICLONE [Concomitant]
     Active Substance: ZOPICLONE
  3. DEXAMETHASONE. [Concomitant]
     Active Substance: DEXAMETHASONE
  4. FOLINIC ACID [Concomitant]
     Active Substance: LEUCOVORIN
  5. GRANISETRON [Concomitant]
     Active Substance: GRANISETRON

REACTIONS (4)
  - Pruritus [Recovered/Resolved]
  - Swollen tongue [Recovered/Resolved]
  - Burning sensation [Recovered/Resolved]
  - Nausea [Recovered/Resolved]
